FAERS Safety Report 6120673-5 (Version None)
Quarter: 2009Q1

REPORT INFORMATION
  Report Type: 
  Country: None (occurrence: None)
  Receive Date: 20090312
  Receipt Date: 20090312
  Transmission Date: 20090719
  Serious: Yes (Life-Threatening, Other)
  Sender: FDA-Public Use
  Company Number: None

PATIENT
  Age: 64 Year
  Sex: Female
  Weight: 120.6568 kg

DRUGS (1)
  1. TRAMADOL HCL [Suspect]
     Indication: SURGERY
     Dosage: 50 MG EVERY 6 HOURS PO
     Route: 048
     Dates: start: 20081205, end: 20081210

REACTIONS (2)
  - ANXIETY [None]
  - NERVOUSNESS [None]
